FAERS Safety Report 8112488-3 (Version None)
Quarter: 2012Q1

REPORT INFORMATION
  Report Type: 
  Country: None (occurrence: None)
  Receive Date: 20120203
  Receipt Date: 20120131
  Transmission Date: 20120608
  Serious: Yes (Other)
  Sender: FDA-Public Use
  Company Number: CN-ROCHE-1035837

PATIENT
  Age: 69 Year
  Sex: Male

DRUGS (3)
  1. MYCOPHENOLATE MOFETIL (CELLCEPT) [Suspect]
     Indication: IMMUNOSUPPRESSION
  2. METHYLPREDNISOLONE [Concomitant]
     Indication: IMMUNOSUPPRESSION
  3. CYCLOSPORINE [Concomitant]
     Indication: IMMUNOSUPPRESSION

REACTIONS (4)
  - LUNG INFECTION [None]
  - PANCREATITIS [None]
  - CHOLECYSTITIS ACUTE [None]
  - WOUND INFECTION [None]
